FAERS Safety Report 9419840 (Version 1)
Quarter: 2013Q3

REPORT INFORMATION
  Report Type: Spontaneous
  Country: NL (occurrence: NL)
  Receive Date: 20130725
  Receipt Date: 20130725
  Transmission Date: 20140515
  Serious: Yes (Death, Other)
  Sender: FDA-Public Use
  Company Number: NL-TEVA-419039ISR

PATIENT
  Age: 76 Year
  Sex: Male

DRUGS (4)
  1. METHOTREXAT [Suspect]
     Indication: RHEUMATOID ARTHRITIS
     Dosage: ONCE A WEEK 15 MG
     Route: 048
     Dates: start: 2001
  2. INFLIXIMAB INFUSIEPOEDER 100MG [Interacting]
     Indication: RHEUMATOID ARTHRITIS
     Dosage: EXTRA INFO: ONCE EVERY 8 WEEKS, 400 MG (PREVIOUSLY HIGHER)
     Route: 042
     Dates: start: 2001, end: 20130401
  3. METOPROLOL TABLET   50MG [Concomitant]
     Dosage: 50 MILLIGRAM DAILY; ONCE DAILY ONE PIECE
     Route: 048
  4. CALCIUMCARBONAAT/COLECALCIFEROL KAUWTA 1,25G/800IE [Concomitant]
     Dosage: 1 DOSAGE FORMS DAILY; ONCE DAILY ONE PIECE
     Route: 048

REACTIONS (3)
  - Small cell lung cancer [Fatal]
  - Drug interaction [Unknown]
  - Thrombosis [Unknown]
